FAERS Safety Report 25906644 (Version 2)
Quarter: 2025Q4

REPORT INFORMATION
  Report Type: Spontaneous
  Country: US (occurrence: US)
  Receive Date: 20251010
  Receipt Date: 20251201
  Transmission Date: 20260117
  Serious: No
  Sender: PFIZER
  Company Number: US-PFIZER INC-202500197250

PATIENT
  Age: 14 Year
  Sex: Female
  Weight: 40.4 kg

DRUGS (2)
  1. GENOTROPIN [Suspect]
     Active Substance: SOMATROPIN
     Indication: Turner^s syndrome
     Dosage: 1.8 MG
     Dates: start: 2023, end: 2025
  2. GENOTROPIN [Suspect]
     Active Substance: SOMATROPIN
     Dosage: 2 MG
     Dates: start: 2025

REACTIONS (1)
  - Device mechanical issue [Unknown]

NARRATIVE: CASE EVENT DATE: 20250930
